FAERS Safety Report 4283488-9 (Version None)
Quarter: 2004Q1

REPORT INFORMATION
  Report Type: 
  Country: None (occurrence: None)
  Receive Date: 20040115
  Receipt Date: 20030926
  Transmission Date: 20041129
  Serious: Yes (Other)
  Sender: FDA-Public Use
  Company Number: US-JNJFOC-20030906223

PATIENT
  Sex: Male

DRUGS (1)
  1. DOXIL [Suspect]
     Indication: KAPOSI'S SARCOMA
     Dosage: INTRAVENOUS
     Route: 042

REACTIONS (1)
  - PANCYTOPENIA [None]
